FAERS Safety Report 5259371-9 (Version None)
Quarter: 2007Q1

REPORT INFORMATION
  Report Type: 
  Country: None (occurrence: None)
  Receive Date: 20070305
  Receipt Date: 20070220
  Transmission Date: 20070707
  Serious: Yes (Disabling)
  Sender: FDA-Public Use
  Company Number: OSCN-NO-0608L-0243

PATIENT
  Age: 57 Year
  Sex: Male

DRUGS (7)
  1. OMNISCAN [Suspect]
     Indication: DRUG USE FOR UNKNOWN INDICATION
     Dosage: SINGLE DOSE
  2. INSULIN [Concomitant]
  3. UNSPECIFIED CORTICOSTEROIDS [Concomitant]
  4. MYCOPHENOLATE MOFETIL [Concomitant]
  5. AMPHOTERICINE B, LIPOSOME (LIPOSOMAL AMPHOTERICINE B) [Concomitant]
  6. ACYCLOVIR [Concomitant]
  7. BACTRIM [Concomitant]

REACTIONS (2)
  - JOINT CONTRACTURE [None]
  - NEPHROGENIC FIBROSING DERMOPATHY [None]
